FAERS Safety Report 12219509 (Version 3)
Quarter: 2016Q2

REPORT INFORMATION
  Report Type: Spontaneous
  Country: US (occurrence: US)
  Receive Date: 20160329
  Receipt Date: 20160525
  Transmission Date: 20160815
  Serious: Yes (Life-Threatening, Hospitalization, Other)
  Sender: FDA-Public Use
  Company Number: US-009507513-1603USA012573

PATIENT
  Age: 70 Year
  Sex: Male
  Weight: 63.39 kg

DRUGS (13)
  1. WELLBUTRIN XL [Concomitant]
     Active Substance: BUPROPION HYDROCHLORIDE
     Dosage: UNK
     Dates: start: 20150625
  2. TESSALON [Concomitant]
     Active Substance: BENZONATATE
     Indication: COUGH
     Dosage: 1 CAPSULE THREE TIMES DAILY, (PRN)
     Route: 048
     Dates: start: 20141124, end: 20160317
  3. REMERON [Concomitant]
     Active Substance: MIRTAZAPINE
     Dosage: UNK
     Dates: start: 20150625
  4. KEYTRUDA [Suspect]
     Active Substance: PEMBROLIZUMAB
     Dosage: 200 MG, Q3W
     Route: 042
     Dates: start: 201602, end: 20160317
  5. OSCAL [Concomitant]
     Active Substance: CALCIUM CARBONATE
     Dosage: 1 TABLET, BID
     Route: 046
     Dates: start: 20150709
  6. COMPAZINE [Concomitant]
     Active Substance: PROCHLORPERAZINE MALEATE
     Indication: NAUSEA
     Dosage: 1 TABLET EVERY 6 HOURS, (PRN)
     Route: 048
     Dates: start: 20141113, end: 20160317
  7. KEYTRUDA [Suspect]
     Active Substance: PEMBROLIZUMAB
     Indication: THROAT CANCER
     Dosage: 200 MG, Q3W
     Route: 042
     Dates: start: 20150709, end: 20160104
  8. HYDROXYUREA. [Concomitant]
     Active Substance: HYDROXYUREA
  9. SYNTHROID [Concomitant]
     Active Substance: LEVOTHYROXINE SODIUM
     Dosage: UNK
     Dates: start: 20151209
  10. CELEXA [Concomitant]
     Active Substance: CITALOPRAM HYDROBROMIDE
     Dosage: UNK
     Dates: start: 20151201
  11. MYCOSTATIN [Concomitant]
     Active Substance: NYSTATIN
     Dosage: STRENGTH: 100000 UNIT/ML
     Route: 048
     Dates: start: 20150904
  12. ROCALTROL [Concomitant]
     Active Substance: CALCITRIOL
     Dosage: 3 CAPSULES DAILY
     Route: 048
     Dates: start: 20150603
  13. KLONOPIN [Concomitant]
     Active Substance: CLONAZEPAM
     Dosage: 1 TABLET AT BEDTIME
     Route: 048
     Dates: start: 20140623, end: 20160317

REACTIONS (20)
  - Pneumonia [Recovered/Resolved]
  - Pain [Unknown]
  - Depression [Unknown]
  - Nerve root compression [Unknown]
  - Essential thrombocythaemia [Unknown]
  - Laryngeal cancer [Unknown]
  - Fall [Unknown]
  - Retroperitoneal haemorrhage [Unknown]
  - Cerebral infarction [Unknown]
  - Pulmonary embolism [Unknown]
  - Pain in extremity [Unknown]
  - Drug ineffective for unapproved indication [Not Recovered/Not Resolved]
  - Poor quality sleep [Unknown]
  - Seizure [Unknown]
  - Vertebral lesion [Unknown]
  - Hypoparathyroidism [Unknown]
  - Hypomagnesaemia [Unknown]
  - Product use issue [Unknown]
  - Anaemia of chronic disease [Unknown]
  - Refractory anaemia with ringed sideroblasts [Unknown]

NARRATIVE: CASE EVENT DATE: 201507
